FAERS Safety Report 23181914 (Version 1)
Quarter: 2023Q4

REPORT INFORMATION
  Report Type: Report from Study
  Country: JP (occurrence: JP)
  Receive Date: 20231114
  Receipt Date: 20231114
  Transmission Date: 20240109
  Serious: Yes (Life-Threatening, Hospitalization, Other)
  Sender: FDA-Public Use
  Company Number: JP-ALXN-A202110493AA

PATIENT
  Age: 71 Year
  Sex: Male
  Weight: 60 kg

DRUGS (17)
  1. ULTOMIRIS [Suspect]
     Active Substance: RAVULIZUMAB-CWVZ
     Indication: Paroxysmal nocturnal haemoglobinuria
     Dosage: 2400 MG, SINGLE
     Route: 042
     Dates: start: 20191204, end: 20191204
  2. ULTOMIRIS [Suspect]
     Active Substance: RAVULIZUMAB-CWVZ
     Dosage: 3000 MILLIGRAM, Q56
     Route: 042
     Dates: start: 20191218, end: 20200212
  3. ULTOMIRIS [Suspect]
     Active Substance: RAVULIZUMAB-CWVZ
     Dosage: 3300 MILLIGRAM, Q56
     Route: 042
     Dates: start: 20200408, end: 20210830
  4. ULTOMIRIS [Suspect]
     Active Substance: RAVULIZUMAB-CWVZ
     Dosage: 3300 MILLIGRAM, Q56
     Route: 042
     Dates: end: 20211027
  5. ULTOMIRIS [Suspect]
     Active Substance: RAVULIZUMAB-CWVZ
     Indication: Paroxysmal nocturnal haemoglobinuria
     Dosage: 3300 MILLIGRAM, Q56
     Route: 042
  6. ABRAXANE [Suspect]
     Active Substance: PACLITAXEL
     Indication: Non-small cell lung cancer
     Dosage: 175 MILLIGRAM, SINGLE
     Route: 051
     Dates: end: 20210120
  7. PREDONINE [Concomitant]
     Active Substance: PREDNISOLONE
     Indication: Paroxysmal nocturnal haemoglobinuria
     Dosage: 5 MG, QD
     Route: 048
     Dates: start: 20190701
  8. LANSOPRAZOLE [Concomitant]
     Active Substance: LANSOPRAZOLE
     Indication: Gastrooesophageal reflux disease
     Dosage: 15 MG, QD
     Route: 048
     Dates: start: 20090219
  9. MAGNESIUM OXIDE [Concomitant]
     Active Substance: MAGNESIUM OXIDE
     Indication: Constipation
     Dosage: 330 MG, TID
     Route: 048
     Dates: start: 20090219
  10. SHAKUYAKUKANZOTO [Concomitant]
     Active Substance: HERBALS
     Indication: Muscle spasms
     Dosage: 2.5 MG, PRN
     Route: 048
     Dates: start: 20210121
  11. LECICARBON                         /00739901/ [Concomitant]
     Indication: Constipation
     Dosage: 1 DF, PRN
     Route: 054
     Dates: start: 20210126
  12. FLUTICASONE FUROATE\VILANTEROL TRIFENATATE [Concomitant]
     Active Substance: FLUTICASONE FUROATE\VILANTEROL TRIFENATATE
     Indication: Asthma
     Dosage: ELLIPTA, QD
     Dates: start: 20191106
  13. HERBALS [Concomitant]
     Active Substance: HERBALS
     Indication: Constipation
     Dosage: 2.5 MG, TID
     Route: 048
     Dates: start: 20201021, end: 20201118
  14. HERBALS [Concomitant]
     Active Substance: HERBALS
     Dosage: 2.5 MG, TID
     Route: 048
     Dates: start: 20210830, end: 20220308
  15. PROCATEROL HYDROCHLORIDE [Concomitant]
     Active Substance: PROCATEROL HYDROCHLORIDE
     Indication: Asthma
     Dosage: 10 ?G, DURING DYSPNOEA
     Route: 055
     Dates: start: 20211027
  16. PROTAMINE [Concomitant]
     Active Substance: PROTAMINE
     Indication: Heparin neutralisation therapy
     Dosage: 20 MG, SINGLE
     Route: 051
     Dates: start: 20220305, end: 20220305
  17. PREDONINE                          /00016203/ [Concomitant]
     Indication: Paroxysmal nocturnal haemoglobinuria
     Dosage: 5 MG, QD
     Route: 051
     Dates: start: 20220303, end: 20220307

REACTIONS (6)
  - Non-small cell lung cancer [Recovering/Resolving]
  - Bile duct stone [Recovered/Resolved]
  - Sepsis [Recovered/Resolved]
  - Anaemia [Recovered/Resolved]
  - Bladder cancer [Recovered/Resolved]
  - Limb injury [Recovered/Resolved]

NARRATIVE: CASE EVENT DATE: 20201115
